FAERS Safety Report 7982277-9 (Version None)
Quarter: 2011Q4

REPORT INFORMATION
  Report Type: 
  Country: None (occurrence: None)
  Receive Date: 20111214
  Receipt Date: 20111214
  Transmission Date: 20120403
  Serious: Yes (Hospitalization)
  Sender: FDA-Public Use
  Company Number: None

PATIENT
  Sex: Male
  Weight: 75.5 kg

DRUGS (2)
  1. CISPLATIN [Suspect]
     Dosage: 75 MG
     Dates: end: 20111121
  2. TAXOTERE [Suspect]
     Dosage: 75 MG
     Dates: end: 20111121

REACTIONS (7)
  - CONSTIPATION [None]
  - ABDOMINAL DISCOMFORT [None]
  - GASTROINTESTINAL SOUNDS ABNORMAL [None]
  - PNEUMATOSIS [None]
  - HAEMATEMESIS [None]
  - FLATULENCE [None]
  - ABDOMINAL DISTENSION [None]
